FAERS Safety Report 7101612-7 (Version None)
Quarter: 2010Q4

REPORT INFORMATION
  Report Type: 
  Country: None (occurrence: None)
  Receive Date: 20101115
  Receipt Date: 20101104
  Transmission Date: 20110411
  Serious: Yes (Other)
  Sender: FDA-Public Use
  Company Number: IE-BAYER-201045092GPV

PATIENT
  Age: 45 Year
  Sex: Female

DRUGS (1)
  1. MIRENA [Suspect]
     Indication: CONTRACEPTION
     Route: 015

REACTIONS (1)
  - UTERINE LEIOMYOMA [None]
